FAERS Safety Report 10731897 (Version 3)
Quarter: 2015Q1

REPORT INFORMATION
  Report Type: Spontaneous
  Country: JP (occurrence: None)
  Receive Date: 20150120
  Receipt Date: 20150218
  Transmission Date: 20150721
  Serious: Yes (Death)
  Sender: FDA-Public Use
  Company Number: 2015FE00072

PATIENT
  Age: 82 Year
  Sex: Male
  Weight: 45 kg

DRUGS (13)
  1. MEPTIN MINITAB (PROCATEROL HYDROCHLORIDE) [Concomitant]
  2. HYALEIN (HYALURONATE SODIUM) [Concomitant]
  3. HALFDIGOXIN (DIGOXIN) [Concomitant]
  4. REBAMIPIDE [Concomitant]
     Active Substance: REBAMIPIDE
  5. LOXOPROFEN [Concomitant]
     Active Substance: LOXOPROFEN
  6. XARELTO [Concomitant]
     Active Substance: RIVAROXABAN
  7. GONAX [Suspect]
     Active Substance: DEGARELIX
     Indication: PROSTATE CANCER
     Dosage: ONCE/SINGLE
     Route: 058
     Dates: start: 20130826, end: 20130826
  8. CLARITHROMYCIN. [Concomitant]
     Active Substance: CLARITHROMYCIN
  9. KARY UNI (PIRENOXINE) [Concomitant]
  10. FUROSEMIDE. [Concomitant]
     Active Substance: FUROSEMIDE
  11. CARBOCISTEINE [Concomitant]
     Active Substance: CARBOCYSTEINE
  12. CASODEX [Concomitant]
     Active Substance: BICALUTAMIDE
  13. EVIPROSTAT (SERENOA REPENS) [Concomitant]

REACTIONS (3)
  - Lung neoplasm malignant [None]
  - Death [None]
  - Respiratory disorder [None]

NARRATIVE: CASE EVENT DATE: 20141005
